FAERS Safety Report 8921312 (Version 1)
Quarter: 2012Q4

REPORT INFORMATION
  Report Type: 
  Country: US (occurrence: US)
  Receive Date: 20121121
  Receipt Date: 20121121
  Transmission Date: 20130627
  Serious: Yes (Other)
  Sender: FDA-Public Use
  Company Number: US-BRISTOL-MYERS SQUIBB COMPANY-17138603

PATIENT
  Age: 78 Year
  Sex: Female

DRUGS (2)
  1. ONGLYZA TABS 2.5 MG [Suspect]
     Dosage: increased to 5 mg daily.
  2. METFORMIN HCL [Suspect]

REACTIONS (2)
  - Pancreatitis [Unknown]
  - Drug ineffective [Unknown]
